FAERS Safety Report 8079015-0 (Version None)
Quarter: 2012Q1

REPORT INFORMATION
  Report Type: 
  Country: None (occurrence: None)
  Receive Date: 20120128
  Receipt Date: 20110705
  Transmission Date: 20120608
  Serious: No
  Sender: FDA-Public Use
  Company Number: US-ABBOTT-11P-163-0836558-00

PATIENT
  Age: 36 Year
  Sex: Female

DRUGS (3)
  1. HUMIRA [Suspect]
     Indication: CROHN'S DISEASE
     Dates: start: 20110501
  2. ZYRTEC [Concomitant]
     Indication: HYPERSENSITIVITY
     Dosage: DAILY
  3. OMEPRAZOLE [Concomitant]
     Indication: PEPTIC ULCER
     Dosage: DAILY

REACTIONS (4)
  - ERYTHEMA NODOSUM [None]
  - PYREXIA [None]
  - HEADACHE [None]
  - ARTHRALGIA [None]
